FAERS Safety Report 13205078 (Version 2)
Quarter: 2020Q4

REPORT INFORMATION
  Report Type: Spontaneous
  Country: US (occurrence: US)
  Receive Date: 20170209
  Receipt Date: 20201211
  Transmission Date: 20210113
  Serious: Yes (Death, Hospitalization)
  Sender: FDA-Public Use
  Company Number: US-BAYER-2016-240913

PATIENT
  Age: 88 Year
  Sex: Female

DRUGS (4)
  1. XARELTO [Suspect]
     Active Substance: RIVAROXABAN
     Indication: ATRIAL FIBRILLATION
  2. XARELTO [Suspect]
     Active Substance: RIVAROXABAN
     Indication: CEREBROVASCULAR ACCIDENT PROPHYLAXIS
     Dosage: UNK
     Route: 048
     Dates: start: 2015, end: 20150821
  3. XARELTO [Suspect]
     Active Substance: RIVAROXABAN
     Indication: CARDIAC DISORDER
     Dosage: 15 MG, QD
     Route: 048
     Dates: start: 20150731, end: 20150814
  4. BABY ASPIRIN [Suspect]
     Active Substance: ASPIRIN
     Indication: ANTICOAGULANT THERAPY
     Dosage: 0.5 DF

REACTIONS (1)
  - Gastric ulcer haemorrhage [Recovered/Resolved]

NARRATIVE: CASE EVENT DATE: 20150821
